FAERS Safety Report 25924427 (Version 1)
Quarter: 2025Q4

REPORT INFORMATION
  Report Type: Spontaneous
  Country: MY (occurrence: MY)
  Receive Date: 20251015
  Receipt Date: 20251015
  Transmission Date: 20260118
  Serious: Yes (Death, Other)
  Sender: NOVARTIS
  Company Number: MY-002147023-NVSC2025MY157907

PATIENT
  Age: 37 Year
  Sex: Male

DRUGS (10)
  1. CYCLOSPORINE [Suspect]
     Active Substance: CYCLOSPORINE
     Indication: Prophylaxis against graft versus host disease
     Dosage: UNK
     Route: 048
  2. METHOTREXATE [Suspect]
     Active Substance: METHOTREXATE
     Indication: Prophylaxis against graft versus host disease
     Dosage: UNK
     Route: 065
  3. METHYLPREDNISOLONE [Suspect]
     Active Substance: METHYLPREDNISOLONE
     Indication: Prophylaxis against graft versus host disease
     Dosage: 500 MG, QD
     Route: 042
  4. METHYLPREDNISOLONE [Suspect]
     Active Substance: METHYLPREDNISOLONE
     Dosage: 2 MG/KG/DAY
     Route: 042
  5. METHYLPREDNISOLONE [Suspect]
     Active Substance: METHYLPREDNISOLONE
     Dosage: 1 MG/KG/DAY
     Route: 042
  6. MYCOPHENOLATE MOFETIL [Suspect]
     Active Substance: MYCOPHENOLATE MOFETIL
     Indication: Prophylaxis against graft versus host disease
     Dosage: 1000 MG, BID
     Route: 042
  7. METRONIDAZOLE [Concomitant]
     Active Substance: METRONIDAZOLE
     Indication: Gastrointestinal infection
     Dosage: UNK
     Route: 048
  8. RUXOLITINIB [Concomitant]
     Active Substance: RUXOLITINIB
     Indication: Prophylaxis against graft versus host disease
     Dosage: 10 MG, BID
     Route: 065
  9. HYDROCORTISONE [Concomitant]
     Active Substance: HYDROCORTISONE
     Indication: Prophylaxis against graft versus host disease
     Dosage: 100 MG, TID
     Route: 042
  10. PIPERACILLIN SODIUM\TAZOBACTAM SODIUM [Concomitant]
     Active Substance: PIPERACILLIN SODIUM\TAZOBACTAM SODIUM
     Indication: Gastrointestinal infection
     Dosage: UNK
     Route: 042

REACTIONS (17)
  - Multiple organ dysfunction syndrome [Fatal]
  - Graft versus host disease in liver [Unknown]
  - Jaundice [Recovering/Resolving]
  - Graft versus host disease in skin [Unknown]
  - Rash macular [Unknown]
  - Graft versus host disease in gastrointestinal tract [Unknown]
  - Diarrhoea [Not Recovered/Not Resolved]
  - Thrombocytopenia [Unknown]
  - Melaena [Unknown]
  - Acute kidney injury [Unknown]
  - Uraemic encephalopathy [Unknown]
  - Abdominal pain [Unknown]
  - Faeces discoloured [Unknown]
  - Abdominal distension [Unknown]
  - Vomiting [Unknown]
  - Gastrointestinal sounds abnormal [Unknown]
  - Intestinal dilatation [Unknown]
